FAERS Safety Report 24388067 (Version 1)
Quarter: 2024Q4

REPORT INFORMATION
  Report Type: Spontaneous
  Country: US (occurrence: US)
  Receive Date: 20241002
  Receipt Date: 20241002
  Transmission Date: 20250114
  Serious: Yes (Hospitalization, Other)
  Sender: PURDUE
  Company Number: US-NAPPMUNDI-GBR-2024-0120022

PATIENT
  Age: 67 Year
  Sex: Female

DRUGS (4)
  1. HYDROMORPHONE HYDROCHLORIDE [Suspect]
     Active Substance: HYDROMORPHONE HYDROCHLORIDE
     Indication: Product used for unknown indication
     Dosage: 4 MILLIGRAM, Q4H (IMMEDIATE RELEASE)
     Route: 065
  2. HYDROMORPHONE HYDROCHLORIDE [Suspect]
     Active Substance: HYDROMORPHONE HYDROCHLORIDE
     Dosage: 4 MILLIGRAM, Q6H (IMMEDIATE RELEASE)
     Route: 065
  3. HYDROMORPHONE HYDROCHLORIDE [Suspect]
     Active Substance: HYDROMORPHONE HYDROCHLORIDE
     Dosage: 8 MILLIGRAM, QD (EXTENDED RELEASE)
     Route: 065
  4. CLONAZEPAM [Suspect]
     Active Substance: CLONAZEPAM
     Indication: Product used for unknown indication
     Dosage: UNK
     Route: 065

REACTIONS (4)
  - Acute respiratory failure [Recovering/Resolving]
  - Stress cardiomyopathy [Recovering/Resolving]
  - Drug withdrawal syndrome [Recovering/Resolving]
  - Hypertension [Recovering/Resolving]
